FAERS Safety Report 19583815 (Version 1)
Quarter: 2021Q3

REPORT INFORMATION
  Report Type: Spontaneous
  Country: US (occurrence: US)
  Receive Date: 20210720
  Receipt Date: 20210720
  Transmission Date: 20211014
  Serious: No
  Sender: FDA-Public Use
  Company Number: US-VERTEX PHARMACEUTICALS-2019-000343

PATIENT
  Age: 23 Year
  Sex: Female
  Weight: 47.62 kg

DRUGS (3)
  1. SYMDEKO [Suspect]
     Active Substance: IVACAFTOR\TEZACAFTOR
     Indication: CYSTIC FIBROSIS
     Dosage: 100MG TEZACAFTOR/150MG IVACAFTOR IN THE MORNING; 150MG IVACAFTOR IN THE EVENING
     Route: 048
     Dates: start: 2018
  2. SYMDEKO [Suspect]
     Active Substance: IVACAFTOR\TEZACAFTOR
     Dosage: FULL DOSE
     Route: 048
     Dates: start: 20181206
  3. KALYDECO [Suspect]
     Active Substance: IVACAFTOR
     Indication: CYSTIC FIBROSIS
     Dosage: UNK MG
     Route: 048
     Dates: start: 2018

REACTIONS (1)
  - Infectious mononucleosis [Unknown]

NARRATIVE: CASE EVENT DATE: 201810
